FAERS Safety Report 14553525 (Version 1)
Quarter: 2018Q1

REPORT INFORMATION
  Report Type: Spontaneous
  Country: FR (occurrence: FR)
  Receive Date: 20180220
  Receipt Date: 20180220
  Transmission Date: 20180509
  Serious: Yes (Hospitalization)
  Sender: FDA-Public Use
  Company Number: FR-TEVA-2018-FR-857067

PATIENT
  Age: 94 Year
  Sex: Female
  Weight: 56 kg

DRUGS (7)
  1. COUMADINE [Interacting]
     Active Substance: WARFARIN SODIUM
     Indication: DEEP VEIN THROMBOSIS
     Dosage: 4 MILLIGRAM DAILY;
     Route: 048
     Dates: start: 201708, end: 20171117
  2. SOLUPRED (PREDNISOLONE) [Interacting]
     Active Substance: PREDNISOLONE
     Indication: BRONCHITIS
     Dosage: 40 MILLIGRAM DAILY;
     Route: 048
     Dates: start: 20171113, end: 20171117
  3. NORSET [Concomitant]
     Active Substance: MIRTAZAPINE
  4. LASILIX FAIBLE 20 MG [Concomitant]
     Active Substance: FUROSEMIDE
     Dosage: 20 MILLIGRAM DAILY;
     Route: 065
  5. AMOXICILLIN. [Suspect]
     Active Substance: AMOXICILLIN
     Indication: BRONCHITIS
     Dosage: 3 MILLIGRAM DAILY;
     Route: 048
     Dates: start: 20171113, end: 20171117
  6. ATARAX [Concomitant]
     Active Substance: HYDROXYZINE HYDROCHLORIDE
     Dosage: 12.5 MILLIGRAM DAILY;
  7. TAREG 160 MG [Concomitant]
     Active Substance: VALSARTAN
     Dosage: 160 MILLIGRAM DAILY;

REACTIONS (2)
  - Potentiating drug interaction [Recovered/Resolved]
  - International normalised ratio increased [Recovered/Resolved]

NARRATIVE: CASE EVENT DATE: 20171113
